FAERS Safety Report 9278445 (Version 1)
Quarter: 2012Q4

REPORT INFORMATION
  Report Type: Spontaneous
  Country: JP (occurrence: None)
  Receive Date: 20121109
  Receipt Date: 20121109
  Transmission Date: 20130627
  Serious: Yes (Hospitalization)
  Sender: FDA-Public Use
  Company Number: 2012S1000761

PATIENT
  Age: 84 Year
  Sex: Female
  Weight: 32 kg

DRUGS (13)
  1. CUBICIN [Suspect]
     Indication: STAPHYLOCOCCAL SEPSIS
     Route: 042
     Dates: start: 20120828, end: 20120830
  2. ARBEKACIN SULFATE [Concomitant]
  3. PN TWIN [Concomitant]
  4. ELEMENMIC [Concomitant]
  5. MULTAMIN [Concomitant]
  6. MEYLON [Concomitant]
  7. FAMOTIDINE [Concomitant]
  8. POTASSIUM CHLORIDE [Concomitant]
  9. MAGLAX [Concomitant]
  10. NIFEDIPINE [Concomitant]
  11. SOLANAX [Concomitant]
  12. SERTRALINE [Concomitant]
  13. LUMIGAN [Concomitant]

REACTIONS (5)
  - Off label use [None]
  - Alanine aminotransferase increased [None]
  - Aspartate aminotransferase increased [None]
  - Blood alkaline phosphatase increased [None]
  - Blood lactate dehydrogenase increased [None]
